FAERS Safety Report 9486978 (Version 1)
Quarter: 2013Q3

REPORT INFORMATION
  Report Type: Report from Study
  Country: US (occurrence: US)
  Receive Date: 20130829
  Receipt Date: 20130829
  Transmission Date: 20140515
  Serious: Yes (Hospitalization)
  Sender: FDA-Public Use
  Company Number: US-GLAXOSMITHKLINE-A1039572A

PATIENT
  Age: 47 Year
  Sex: Female
  Weight: 67 kg

DRUGS (17)
  1. MELPHALAN [Suspect]
     Indication: AMYLOIDOSIS
     Dosage: 200MGM2 CYCLIC
     Route: 042
  2. VELCADE [Suspect]
     Indication: AMYLOIDOSIS
     Route: 042
     Dates: start: 20130521, end: 20130722
  3. DEXAMETHASONE [Suspect]
     Indication: AMYLOIDOSIS
     Dates: start: 20130521, end: 20130621
  4. CITALOPRAM [Concomitant]
  5. MIDODRINE [Concomitant]
  6. SPIRONOLACTONE [Concomitant]
  7. LORAZEPAM [Concomitant]
  8. PANTOPRAZOLE [Concomitant]
  9. FLUCONAZOLE [Concomitant]
  10. PROTONIX [Concomitant]
  11. ACYCLOVIR [Concomitant]
  12. PROCHLOROPERAZINE [Concomitant]
  13. PREVIDENT [Concomitant]
  14. LEVAQUIN [Concomitant]
  15. GRANISETRON [Concomitant]
  16. ATIVAN [Concomitant]
  17. DEXAMETHASONE [Concomitant]

REACTIONS (2)
  - Pancytopenia [Not Recovered/Not Resolved]
  - Syncope [Not Recovered/Not Resolved]
